FAERS Safety Report 14041043 (Version 3)
Quarter: 2019Q1

REPORT INFORMATION
  Report Type: Spontaneous
  Country: MT (occurrence: MT)
  Receive Date: 20171004
  Receipt Date: 20190121
  Transmission Date: 20190417
  Serious: Yes (Life-Threatening, Other)
  Sender: FDA-Public Use
  Company Number: MT-ASTRAZENECA-2017SE98584

PATIENT
  Age: 81 Year
  Sex: Female

DRUGS (3)
  1. QUETIAPINE. [Suspect]
     Active Substance: QUETIAPINE
     Indication: ABNORMAL BEHAVIOUR
     Route: 048
  2. QUETIAPINE. [Suspect]
     Active Substance: QUETIAPINE
     Indication: ABNORMAL BEHAVIOUR
     Route: 048
  3. BENDROFLUMETHIAZIDE [Concomitant]
     Active Substance: BENDROFLUMETHIAZIDE
     Dosage: 2.5MG UNKNOWN

REACTIONS (3)
  - Malignant hypertension [Recovered/Resolved]
  - Intravascular haemolysis [Recovered/Resolved]
  - Neuroleptic malignant syndrome [Recovered/Resolved]
